FAERS Safety Report 12285538 (Version 1)
Quarter: 2016Q2

REPORT INFORMATION
  Report Type: Spontaneous
  Country: FR (occurrence: FR)
  Receive Date: 20160420
  Receipt Date: 20160420
  Transmission Date: 20160815
  Serious: Yes (Other)
  Sender: FDA-Public Use
  Company Number: FR-TEVA-650969ISR

PATIENT
  Age: 78 Year
  Sex: Female

DRUGS (20)
  1. DOXORUBICINE TEVA [Suspect]
     Active Substance: DOXORUBICIN
     Indication: DIFFUSE LARGE B-CELL LYMPHOMA
     Dosage: 1ST CYCLE OF R-MINI CHOP CHEMOTHERAPY PROTOCOL
     Route: 042
     Dates: start: 20160114
  2. LEVOTHYROX 75 MCG [Concomitant]
  3. ENDOXAN [Suspect]
     Active Substance: CYCLOPHOSPHAMIDE
     Indication: DIFFUSE LARGE B-CELL LYMPHOMA
     Dosage: 1ST CYCLE OF CHEMOTHERAPY PROTOCOL R-MINI CHOP
     Route: 042
     Dates: start: 20160114
  4. ENDOXAN [Suspect]
     Active Substance: CYCLOPHOSPHAMIDE
     Dosage: 2ND CYCLE OF R-MINI CHOP CHEMOTHERAPY PROTOCOL
     Route: 042
     Dates: start: 20160204
  5. VINCRISTINE HOSPIRA [Suspect]
     Active Substance: VINCRISTINE
     Dosage: 2ND CYCLE OF R-MINI CHOP CHEMOTHERAPY PROTOCOL
     Dates: start: 20160204
  6. MABTHERA [Suspect]
     Active Substance: RITUXIMAB
     Dosage: 2ND CYCLE OF R-MINI CHOP CHEMOTHERAPY PROTOCOL
     Route: 042
     Dates: start: 20160204
  7. MABTHERA [Suspect]
     Active Substance: RITUXIMAB
     Dosage: 3RD CYCLE OF R-MINI CHOP CHEMOTHERAPY PROTOCOL
     Route: 042
     Dates: start: 20160225, end: 20160225
  8. BACTRIM [Concomitant]
     Active Substance: SULFAMETHOXAZOLE\TRIMETHOPRIM
  9. MABTHERA [Suspect]
     Active Substance: RITUXIMAB
     Indication: DIFFUSE LARGE B-CELL LYMPHOMA
     Dosage: 1ST CYCLE OF R-MINI CHOP CHEMOTHERAPY PROTOCOL
     Route: 042
     Dates: start: 20160114
  10. DEPAMIDE 300 MG [Concomitant]
  11. ALPRAZOLAM. [Concomitant]
     Active Substance: ALPRAZOLAM
  12. DOXORUBICINE TEVA [Suspect]
     Active Substance: DOXORUBICIN
     Dosage: 3RD CYCLE OF R-MINI CHOP CHEMOTHERAPY PROTOCOL
     Route: 042
     Dates: start: 20160225, end: 20160225
  13. ENDOXAN [Suspect]
     Active Substance: CYCLOPHOSPHAMIDE
     Dosage: 3RD CYCLE OF R-MINI CHOP CHEMOTHERAPY PROTOCOL
     Route: 042
     Dates: start: 20160225, end: 20160225
  14. VINCRISTINE HOSPIRA [Suspect]
     Active Substance: VINCRISTINE
     Indication: DIFFUSE LARGE B-CELL LYMPHOMA
     Dosage: 1ST CYCLE OF R-MINI CHOP CHEMOTHERAPY PROTOCOL
     Route: 042
     Dates: start: 20160114
  15. DOXORUBICINE TEVA [Suspect]
     Active Substance: DOXORUBICIN
     Dosage: 2ND CYCLE OF R-MINI CHOP CHEMOTHERAPY PROTOCOL
     Route: 042
     Dates: start: 20160204
  16. VINCRISTINE HOSPIRA [Suspect]
     Active Substance: VINCRISTINE
     Dosage: 3RD CYCLE OF R-MINI CHOP CHEMOTHERAPY PROTOCOL
     Dates: start: 20160225, end: 20160225
  17. SOLIAN 100 MG [Concomitant]
  18. ZELITREX 500 MG [Concomitant]
     Active Substance: VALACYCLOVIR HYDROCHLORIDE
  19. MOVICOL [Concomitant]
     Active Substance: POLYETHYLENE GLYCOL 3350\POTASSIUM CHLORIDE\SODIUM BICARBONATE\SODIUM CHLORIDE
  20. LOXEN LP 50 MG [Concomitant]
     Active Substance: NICARDIPINE

REACTIONS (2)
  - Pancytopenia [Unknown]
  - Neutropenia [Recovering/Resolving]

NARRATIVE: CASE EVENT DATE: 20160216
